FAERS Safety Report 5911863-2 (Version None)
Quarter: 2008Q4

REPORT INFORMATION
  Report Type: 
  Country: None (occurrence: None)
  Receive Date: 20081008
  Receipt Date: 20081003
  Transmission Date: 20090506
  Serious: Yes (Other)
  Sender: FDA-Public Use
  Company Number: US-ASTRAZENECA-2008UW21604

PATIENT
  Age: 51 Year
  Sex: Male
  Weight: 77.1 kg

DRUGS (8)
  1. NEXIUM [Suspect]
     Indication: GASTROOESOPHAGEAL REFLUX DISEASE
     Route: 048
     Dates: start: 20030101, end: 20080201
  2. NEXIUM [Suspect]
     Route: 048
     Dates: start: 20030101, end: 20080201
  3. NEXIUM [Suspect]
     Route: 048
     Dates: start: 20080101
  4. NEXIUM [Suspect]
     Route: 048
     Dates: start: 20080101
  5. ZANTAC [Concomitant]
  6. AMBIEN [Concomitant]
  7. PROCHLORPERAZINE [Concomitant]
  8. COZAAR [Concomitant]

REACTIONS (1)
  - OESOPHAGEAL CARCINOMA [None]
